FAERS Safety Report 22325419 (Version 1)
Quarter: 2023Q2

REPORT INFORMATION
  Report Type: Spontaneous
  Country: US (occurrence: None)
  Receive Date: 20230515
  Receipt Date: 20230515
  Transmission Date: 20230722
  Serious: No
  Sender: FDA-Public Use
  Company Number: None

PATIENT

DRUGS (3)
  1. HUMAN IMMUNOGLOBULIN G [Suspect]
     Active Substance: HUMAN IMMUNOGLOBULIN G
  2. NULOJIX [Suspect]
     Active Substance: BELATACEPT
     Dosage: OTHER ROUTE : IV INFUSION ;?
     Route: 050
  3. ABATACEPT [Suspect]
     Active Substance: ABATACEPT

REACTIONS (2)
  - Product prescribing error [None]
  - Transcription medication error [None]
